FAERS Safety Report 9118837 (Version 2)
Quarter: 2013Q2

REPORT INFORMATION
  Report Type: Spontaneous
  Country: DE (occurrence: DE)
  Receive Date: 20130226
  Receipt Date: 20130508
  Transmission Date: 20140414
  Serious: Yes (Hospitalization, Other)
  Sender: FDA-Public Use
  Company Number: DE-AMGEN-DEUSP2013013356

PATIENT
  Age: 58 Year
  Sex: Female

DRUGS (4)
  1. ENBREL [Suspect]
     Indication: RHEUMATOID ARTHRITIS
     Dosage: 50 MG, WEEKLY
     Dates: start: 20050601, end: 20120702
  2. ENBREL [Suspect]
     Dosage: UNK
     Dates: start: 201210, end: 20130105
  3. ENBREL [Suspect]
     Dosage: UNK
     Dates: start: 20130119
  4. TARGIN [Concomitant]
     Dosage: UNK

REACTIONS (3)
  - Lower limb fracture [Recovered/Resolved]
  - Joint injury [Recovered/Resolved]
  - Fall [Unknown]
